FAERS Safety Report 16773734 (Version 1)
Quarter: 2019Q3

REPORT INFORMATION
  Report Type: Spontaneous
  Country: JP (occurrence: JP)
  Receive Date: 20190904
  Receipt Date: 20190904
  Transmission Date: 20191005
  Serious: Yes (Other)
  Sender: FDA-Public Use
  Company Number: PHJP2019JP011485

PATIENT
  Age: 92 Year
  Sex: Female

DRUGS (4)
  1. TEGRETOL [Suspect]
     Active Substance: CARBAMAZEPINE
     Dosage: 50 MG, QD
     Route: 048
  2. TEGRETOL [Suspect]
     Active Substance: CARBAMAZEPINE
     Indication: PRODUCT USED FOR UNKNOWN INDICATION
     Dosage: 100 MG, QD
     Route: 048
  3. CILOSTAZOL. [Concomitant]
     Active Substance: CILOSTAZOL
     Indication: PROPHYLAXIS
     Dosage: 100 MG, QD
     Route: 065
  4. CILOSTAZOL. [Concomitant]
     Active Substance: CILOSTAZOL
     Dosage: 200 MG, QD
     Route: 065

REACTIONS (2)
  - Bradycardia [Recovering/Resolving]
  - Fall [Recovering/Resolving]
